FAERS Safety Report 11019746 (Version 3)
Quarter: 2016Q2

REPORT INFORMATION
  Report Type: Spontaneous
  Country: US (occurrence: US)
  Receive Date: 20150412
  Receipt Date: 20160530
  Transmission Date: 20160815
  Serious: Yes (Other)
  Sender: FDA-Public Use
  Company Number: US-JNJFOC-20140817234

PATIENT
  Sex: Male

DRUGS (10)
  1. LEVAQUIN [Suspect]
     Active Substance: LEVOFLOXACIN
     Indication: NASOPHARYNGITIS
     Route: 065
     Dates: start: 20140606
  2. HUMIRA [Suspect]
     Active Substance: ADALIMUMAB
     Indication: RHEUMATOID ARTHRITIS
     Route: 065
     Dates: start: 20140308, end: 20140419
  3. PLAVIX [Concomitant]
     Active Substance: CLOPIDOGREL BISULFATE
     Indication: PRODUCT USED FOR UNKNOWN INDICATION
     Route: 065
  4. LOSARTAN. [Concomitant]
     Active Substance: LOSARTAN
     Indication: HYPERTENSION
     Route: 065
  5. OMEPRAZOLE. [Concomitant]
     Active Substance: OMEPRAZOLE
     Indication: PRODUCT USED FOR UNKNOWN INDICATION
     Route: 065
  6. BENAZEPRIL [Concomitant]
     Active Substance: BENAZEPRIL HYDROCHLORIDE
     Indication: PRODUCT USED FOR UNKNOWN INDICATION
     Route: 065
  7. SIMVASTATIN. [Concomitant]
     Active Substance: SIMVASTATIN
     Indication: PRODUCT USED FOR UNKNOWN INDICATION
     Route: 065
  8. ASPIRIN. [Concomitant]
     Active Substance: ASPIRIN
     Indication: PRODUCT USED FOR UNKNOWN INDICATION
     Route: 065
  9. LEVAQUIN [Suspect]
     Active Substance: LEVOFLOXACIN
     Indication: NASOPHARYNGITIS
     Route: 065
     Dates: start: 20140419, end: 2014
  10. LOTENSIN [Concomitant]
     Active Substance: BENAZEPRIL HYDROCHLORIDE
     Indication: BLOOD PRESSURE MEASUREMENT
     Route: 065

REACTIONS (12)
  - Nasopharyngitis [Unknown]
  - Drug ineffective [Recovered/Resolved]
  - Malaise [Unknown]
  - Skin exfoliation [Unknown]
  - Sputum discoloured [Unknown]
  - Rash [Recovered/Resolved]
  - Lower respiratory tract infection [Unknown]
  - Cough [Unknown]
  - Eye swelling [Recovered/Resolved]
  - Arthralgia [Unknown]
  - Rhinorrhoea [Unknown]
  - Urticaria [Recovered/Resolved]

NARRATIVE: CASE EVENT DATE: 2014
